FAERS Safety Report 8400553-2 (Version None)
Quarter: 2012Q2

REPORT INFORMATION
  Report Type: 
  Country: None (occurrence: None)
  Receive Date: 20120531
  Receipt Date: 20120528
  Transmission Date: 20120825
  Serious: No
  Sender: FDA-Public Use
  Company Number: IE-PFIZER INC-2012031499

PATIENT
  Age: 15 Year
  Sex: Female
  Weight: 36 kg

DRUGS (1)
  1. GENOTROPIN [Suspect]
     Indication: GROWTH HORMONE DEFICIENCY
     Dosage: 0.8 MG, ONCE PER NIGHT
     Route: 058
     Dates: start: 20120111

REACTIONS (2)
  - SINUSITIS [None]
  - HEADACHE [None]
